FAERS Safety Report 7775558-5 (Version None)
Quarter: 2011Q3

REPORT INFORMATION
  Report Type: 
  Country: None (occurrence: None)
  Receive Date: 20110923
  Receipt Date: 20110921
  Transmission Date: 20111222
  Serious: Yes (Other)
  Sender: FDA-Public Use
  Company Number: US-JNJFOC-20110907886

PATIENT
  Age: 50 Year
  Sex: Female

DRUGS (2)
  1. DIURETIC [Concomitant]
     Indication: PRODUCT USED FOR UNKNOWN INDICATION
     Route: 065
  2. NICORETTE WHITE ICE GUM [Suspect]
     Indication: SMOKING CESSATION THERAPY
     Dosage: CUTS THE 4MG IN HALF
     Route: 048

REACTIONS (3)
  - DRUG ADMINISTRATION ERROR [None]
  - INTENTIONAL DRUG MISUSE [None]
  - NICOTINE DEPENDENCE [None]
